FAERS Safety Report 20651449 (Version 3)
Quarter: 2022Q4

REPORT INFORMATION
  Report Type: Report from Study
  Country: BR (occurrence: BR)
  Receive Date: 20220330
  Receipt Date: 20221002
  Transmission Date: 20230112
  Serious: Yes (Hospitalization, Other)
  Sender: FDA-Public Use
  Company Number: BR-JNJFOC-20220352416

PATIENT
  Age: 29 Year
  Sex: Male
  Weight: 60 kg

DRUGS (1)
  1. REMICADE [Suspect]
     Active Substance: INFLIXIMAB
     Indication: Crohn^s disease
     Route: 041
     Dates: start: 2020, end: 202108

REACTIONS (4)
  - Intestinal stenosis [Unknown]
  - Crohn^s disease [Unknown]
  - Anal fistula [Unknown]
  - Headache [Unknown]
